FAERS Safety Report 10449497 (Version 1)
Quarter: 2014Q3

REPORT INFORMATION
  Report Type: Spontaneous
  Country: US (occurrence: None)
  Receive Date: 20140911
  Receipt Date: 20140911
  Transmission Date: 20150326
  Serious: No
  Sender: FDA-Public Use
  Company Number: None

PATIENT
  Age: 85 Year
  Sex: Female

DRUGS (1)
  1. NEUPOGEN [Suspect]
     Active Substance: FILGRASTIM
     Indication: MYELODYSPLASTIC SYNDROME
     Dosage: 300 MCG  TWICE WEEKLY EVERY 28 DAYS  SUBCUTANEOUSLY
     Route: 058
     Dates: start: 20140722

REACTIONS (2)
  - Headache [None]
  - Hot flush [None]

NARRATIVE: CASE EVENT DATE: 20140722
